FAERS Safety Report 9339177 (Version 1)
Quarter: 2013Q2

REPORT INFORMATION
  Report Type: Report from Study
  Country: CA (occurrence: CA)
  Receive Date: 20130610
  Receipt Date: 20130610
  Transmission Date: 20140414
  Serious: Yes (Other)
  Sender: FDA-Public Use
  Company Number: CA-UCBSA-078251

PATIENT
  Age: 59 Year
  Sex: Female

DRUGS (13)
  1. CIMZIA [Suspect]
     Indication: RHEUMATOID ARTHRITIS
     Route: 058
     Dates: start: 20130107, end: 2013
  2. CIMZIA [Suspect]
     Indication: RHEUMATOID ARTHRITIS
     Route: 058
     Dates: end: 20120426
  3. CIMZIA [Suspect]
     Indication: RHEUMATOID ARTHRITIS
     Route: 058
     Dates: start: 20110404
  4. ARAVA [Concomitant]
     Indication: RHEUMATOID ARTHRITIS
     Route: 048
  5. CELEBREX [Concomitant]
     Indication: RHEUMATOID ARTHRITIS
     Route: 048
  6. ELAVIL [Concomitant]
     Indication: FIBROMYALGIA
     Route: 048
  7. LYRICA [Concomitant]
     Indication: FIBROMYALGIA
     Route: 048
  8. ASAPHEN [Concomitant]
     Route: 048
  9. ROBAXIN [Concomitant]
     Indication: FIBROMYALGIA
     Route: 048
  10. TAMOXIFEN [Concomitant]
     Indication: BREAST CANCER
     Route: 048
  11. ATIVAN [Concomitant]
     Route: 048
  12. FENTANYL [Concomitant]
     Indication: PAIN
     Dosage: ROUTE: PATCHES
  13. DILAUDID [Concomitant]
     Indication: PAIN
     Route: 048

REACTIONS (3)
  - Pneumonia [Recovered/Resolved]
  - Lung disorder [Not Recovered/Not Resolved]
  - Breast abscess [Recovered/Resolved]
